FAERS Safety Report 5695065-3 (Version None)
Quarter: 2008Q2

REPORT INFORMATION
  Report Type: 
  Country: None (occurrence: None)
  Receive Date: 20080404
  Receipt Date: 20080307
  Transmission Date: 20081010
  Serious: No
  Sender: FDA-Public Use
  Company Number: US-BAYER-200816394NA

PATIENT
  Age: 47 Year
  Sex: Female
  Weight: 88 kg

DRUGS (5)
  1. ULTRAVIST 150 [Suspect]
     Indication: COMPUTERISED TOMOGRAM ABDOMEN
     Route: 042
     Dates: start: 20080307, end: 20080307
  2. NEXIUM [Concomitant]
  3. TOPAMAX [Concomitant]
  4. NAPROXEN [Concomitant]
  5. READI-CAT [Concomitant]
     Indication: COMPUTERISED TOMOGRAM ABDOMEN
     Route: 048
     Dates: start: 20080301, end: 20080301

REACTIONS (3)
  - EAR PRURITUS [None]
  - PRURITUS [None]
  - URTICARIA [None]
